FAERS Safety Report 7660025-X (Version None)
Quarter: 2011Q3

REPORT INFORMATION
  Report Type: 
  Country: None (occurrence: None)
  Receive Date: 20110805
  Receipt Date: 20110726
  Transmission Date: 20111222
  Serious: Yes (Hospitalization, Other)
  Sender: FDA-Public Use
  Company Number: US-AMGEN-USACT2011038372

PATIENT
  Age: 67 Year
  Sex: Male
  Weight: 82.7 kg

DRUGS (74)
  1. LASIX [Concomitant]
     Indication: FLUID OVERLOAD
     Dates: start: 20110608, end: 20110706
  2. SODIUM CHLORIDE [Concomitant]
     Indication: RENAL FAILURE
     Dosage: 80 ML, UNK
     Route: 042
     Dates: start: 20110531, end: 20110707
  3. METOPROLOL TARTRATE [Concomitant]
  4. LEUCOVORIN CALCIUM [Concomitant]
     Dosage: 15 MG, UNK
     Route: 042
     Dates: start: 20110710, end: 20110712
  5. PRILOSEC [Concomitant]
     Indication: GASTROOESOPHAGEAL REFLUX DISEASE
     Dosage: 40 MG, UNK
     Route: 048
     Dates: start: 20110531, end: 20110607
  6. LACTOSE [Concomitant]
     Indication: CONSTIPATION
     Dosage: 30 MG
     Route: 048
     Dates: start: 20110601, end: 20110601
  7. MIDAZOLAM HCL [Concomitant]
     Indication: ANXIETY
     Dosage: 2 MG
     Route: 048
     Dates: start: 20110517, end: 20110517
  8. POTASSIUM PHOSPHATES [Concomitant]
     Dosage: UNK
     Route: 042
     Dates: start: 20110606, end: 20110606
  9. RESTORIL [Concomitant]
     Dosage: 15 MG, UNK
     Route: 048
     Dates: start: 20110621
  10. MAGNESIUM CITRATE [Concomitant]
     Indication: CONSTIPATION
     Dosage: UNK
     Route: 048
     Dates: start: 20110625, end: 20110625
  11. OXALIPLATIN [Concomitant]
     Dosage: UNK UNK, UNK
     Dates: start: 20110517, end: 20110609
  12. LASIX [Concomitant]
     Indication: FLUID RETENTION
     Dosage: UNK UNK, UNK
     Dates: start: 20110601, end: 20110712
  13. DIPHENHYDRAMINE HCL [Concomitant]
     Dosage: 25 MG
     Route: 042
     Dates: start: 20110508, end: 20110707
  14. ACETAZOLAMIDE [Concomitant]
     Dosage: 250 MG, UNK
     Route: 048
     Dates: start: 20110707, end: 20110711
  15. MEPERIDINE HCL [Concomitant]
     Dosage: 25 MG
     Route: 042
     Dates: start: 20110707
  16. HYDROCORTISONE [Concomitant]
     Dosage: 25 MG
     Route: 042
     Dates: start: 20110531, end: 20110712
  17. TRAMADOL HCL [Concomitant]
     Indication: PAIN
     Dosage: 50 MG, UNK
     Route: 048
     Dates: start: 20110511, end: 20110712
  18. ALLOPURINOL [Concomitant]
     Dosage: 300 MG
     Route: 048
     Dates: start: 20110712, end: 20110717
  19. BACTRIUM DS [Concomitant]
     Route: 048
     Dates: start: 20110608, end: 20110711
  20. PROMETHAZINE [Concomitant]
     Dosage: 12.5 MG
     Route: 042
     Dates: start: 20110531, end: 20110614
  21. CYTARABINE [Concomitant]
     Dosage: UNK UNK, UNK
     Dates: start: 20110517
  22. SENNOSIDE [Concomitant]
     Indication: CONSTIPATION
     Dosage: UNK
     Route: 048
     Dates: start: 20110707
  23. MAGNESIUM SULFATE [Concomitant]
     Dosage: 8 MEQ, UNK
     Route: 042
     Dates: start: 20110511, end: 20110607
  24. PHOSPHATE [Concomitant]
     Dosage: UNK
     Route: 048
     Dates: start: 20110508, end: 20110508
  25. DIPHENOXYLATE HCL AND ATROPINE SULFATE [Concomitant]
     Indication: DIARRHOEA
     Dosage: UNK
     Route: 048
     Dates: start: 20110609, end: 20110614
  26. RITUXAN [Concomitant]
     Dosage: UNK
     Dates: start: 20110609
  27. VINCRISTINE [Concomitant]
     Dosage: UNK UNK, UNK
     Dates: start: 20110609
  28. CEFEPIME [Concomitant]
     Indication: INFECTION
     Dosage: 1 G
     Route: 042
     Dates: start: 20110707, end: 20110712
  29. SODIUM ACETATE [Concomitant]
     Dosage: 75 MEQ, UNK
     Route: 042
     Dates: start: 20110707, end: 20110712
  30. POTASSIUM CHLORIDE [Concomitant]
     Indication: HYPOKALAEMIA
     Dosage: 20 MEQ
     Route: 048
     Dates: start: 20110511, end: 20110718
  31. BACTRIUM DS [Concomitant]
     Indication: INFECTION
     Dosage: UNK
     Route: 048
     Dates: start: 20110604, end: 20110712
  32. SODIUM BICARBONATE [Concomitant]
     Indication: DENTAL DISORDER PROPHYLAXIS
     Dosage: 650 MG, UNK
     Route: 048
     Dates: start: 20110531, end: 20110711
  33. ACETAMINOPHEN [Concomitant]
     Indication: PYREXIA
     Dosage: 650 MG
     Route: 048
     Dates: start: 20110507, end: 20110707
  34. DEXTROMETHORPHAN W/GUAIFENESIN [Concomitant]
     Dosage: 10 MG
     Route: 048
     Dates: start: 20110508, end: 20110607
  35. DEMEROL [Concomitant]
     Indication: PAIN
     Dosage: 25 MG
     Route: 042
     Dates: start: 20110519, end: 20110519
  36. DENOSUMAB [Suspect]
     Indication: HYPERCALCAEMIA OF MALIGNANCY
  37. METHOTREXATE [Concomitant]
     Dosage: UNK
     Dates: start: 20110712
  38. FLUDARABINE PHOSPHATE [Concomitant]
     Dosage: UNK UNK, UNK
     Dates: start: 20110517, end: 20110609
  39. DOCUSATE SODIUM [Concomitant]
     Indication: CONSTIPATION
     Dosage: 100 MG, UNK
     Route: 048
     Dates: start: 20110530, end: 20110707
  40. LOMOTIL [Concomitant]
     Indication: DIARRHOEA
     Dosage: 205 MG, UNK
     Route: 048
     Dates: start: 20110508, end: 20110712
  41. POTASSIUM CHLORIDE [Concomitant]
     Indication: ELECTROLYTE SUBSTITUTION THERAPY
  42. GUAIFENESIN [Concomitant]
     Indication: COUGH
     Dosage: 5 ML, UNK
     Route: 048
     Dates: start: 20110712
  43. AMLODIPINE [Concomitant]
     Indication: HYPERTENSION
     Dosage: 5 MG
     Route: 048
     Dates: start: 20110509, end: 20110521
  44. ACYCLOVIR [Concomitant]
     Dosage: 400 MG
     Route: 048
     Dates: start: 20100719
  45. PANTOPRAZOLE [Concomitant]
     Dosage: 40 MG, UNK
     Route: 048
     Dates: start: 20110519, end: 20110521
  46. ROCEPHIN [Concomitant]
     Indication: INFECTION
     Dosage: 2 G
     Route: 042
     Dates: start: 20110625, end: 20110625
  47. SODIUM CHLORIDE [Concomitant]
     Indication: DEHYDRATION
  48. PREDNISOLONE [Concomitant]
     Dosage: UNK
     Route: 047
     Dates: start: 20110707, end: 20110713
  49. MAALOX PLUS [Concomitant]
     Indication: DYSPEPSIA
     Dosage: 15 ML, UNK
     Route: 048
     Dates: start: 20110508, end: 20110712
  50. NEULASTA [Concomitant]
     Indication: FEBRILE NEUTROPENIA
     Dosage: 6 MG
     Route: 058
     Dates: start: 20110523, end: 20110714
  51. ZITHROMAX [Concomitant]
     Indication: OROPHARYNGEAL PAIN
     Dosage: 500 MG
     Route: 048
     Dates: start: 20110713, end: 20110717
  52. CIPROFLOXACIN HCL [Concomitant]
     Dosage: 250 MG
     Route: 048
     Dates: start: 20110531, end: 20110615
  53. TEMAZEPAM [Concomitant]
     Dosage: 15 MG
     Route: 048
     Dates: start: 20110604, end: 20110614
  54. REGLAN [Concomitant]
     Indication: NAUSEA
     Dosage: 10 MG
     Route: 042
     Dates: start: 20110625, end: 20110625
  55. ZOMETA [Concomitant]
     Indication: HYPERCALCAEMIA OF MALIGNANCY
     Dosage: 3.2 MG
     Route: 042
     Dates: start: 20110514, end: 20110514
  56. DOXORUBICIN HCL [Concomitant]
     Dosage: UNK UNK, UNK
     Dates: start: 20110609
  57. DEXAMETHASONE [Concomitant]
     Dosage: UNK UNK, UNK
     Dates: start: 20110609
  58. CYCLOPHOSPHAMIDE [Concomitant]
     Dosage: UNK UNK, UNK
     Dates: start: 20110609, end: 20110712
  59. METOPROLOL TARTRATE [Concomitant]
     Indication: HYPERTENSION
     Dosage: 5 MG
     Route: 042
     Dates: start: 20110531, end: 20110625
  60. FLAGYL [Concomitant]
     Dosage: 500 MG
     Route: 048
     Dates: start: 20110713
  61. HYDRALAZINE HCL [Concomitant]
     Indication: HYPERTENSION
     Dosage: 10 ML, UNK
     Route: 042
     Dates: start: 20110508, end: 20110607
  62. DEXTROSE WATER [Concomitant]
     Dosage: 1000 ML, UNK
     Route: 042
     Dates: start: 20110608, end: 20110614
  63. MICAFUNGIN [Concomitant]
     Dosage: 100 MG, UNK
     Route: 042
     Dates: start: 20110520, end: 20110616
  64. BLOOD CELLS, PACKED HUMAN [Concomitant]
     Indication: ANAEMIA
     Dosage: UNK
     Route: 042
     Dates: start: 20110613, end: 20110621
  65. AVELOX [Concomitant]
     Dosage: 400 MG
     Route: 048
     Dates: start: 20110609, end: 20110614
  66. HYTRIN [Concomitant]
     Indication: BENIGN PROSTATIC HYPERPLASIA
     Dosage: 10 MG, UNK
     Route: 048
     Dates: start: 20110508
  67. METHYLPREDNISOLONE [Concomitant]
     Dosage: 50 MG, UNK
     Route: 042
     Dates: start: 20110707, end: 20110709
  68. MEGACE [Concomitant]
     Indication: DECREASED APPETITE
     Dosage: 400 MG
     Route: 048
     Dates: start: 20110707
  69. PROCHLORPERAZINE [Concomitant]
     Indication: NAUSEA
     Dosage: 10 MG
     Route: 048
     Dates: start: 20110608, end: 20110712
  70. BACTRIUM DS [Concomitant]
     Dosage: 1 UNK, UNK
     Route: 048
     Dates: start: 20110604, end: 20110607
  71. ONDANSETRON [Concomitant]
     Indication: NAUSEA
     Dosage: 4 MG
     Dates: start: 20110531, end: 20110628
  72. DEXTROSE WATER [Concomitant]
     Dosage: 1000 ML
     Route: 042
     Dates: start: 20110517, end: 20110614
  73. LACTULOSE [Concomitant]
     Indication: CONSTIPATION
     Dosage: 15 ML
     Route: 048
     Dates: start: 20110604
  74. PEPCID [Concomitant]
     Dosage: 20 MG, UNK
     Route: 048
     Dates: start: 20110508, end: 20110608

REACTIONS (3)
  - DYSPNOEA [None]
  - FAILURE TO THRIVE [None]
  - COLITIS [None]
